FAERS Safety Report 23186110 (Version 1)
Quarter: 2023Q4

REPORT INFORMATION
  Report Type: Spontaneous
  Country: HR (occurrence: HR)
  Receive Date: 20231115
  Receipt Date: 20231115
  Transmission Date: 20240110
  Serious: Yes (Other)
  Sender: FDA-Public Use
  Company Number: HR-009507513-2311HRV003084

PATIENT
  Sex: Male

DRUGS (1)
  1. ZERBAXA [Suspect]
     Active Substance: CEFTOLOZANE SULFATE\TAZOBACTAM SODIUM
     Dosage: 1.5 GRAM, Q3W
     Route: 042

REACTIONS (33)
  - Haemoglobinaemia [Unknown]
  - Asthenia [Unknown]
  - Back pain [Unknown]
  - Dysuria [Unknown]
  - Pollakiuria [Unknown]
  - Red blood cell count decreased [Unknown]
  - Haematocrit decreased [Unknown]
  - C-reactive protein increased [Unknown]
  - Chromaturia [Unknown]
  - Nitrite urine present [Unknown]
  - Prostatic specific antigen increased [Unknown]
  - Abdominal tenderness [Unknown]
  - Sinus tachycardia [Unknown]
  - White blood cell count [Unknown]
  - Neutrophil count increased [Unknown]
  - Monocyte count increased [Unknown]
  - Lymphocyte count decreased [Unknown]
  - Monocyte count increased [Unknown]
  - Blood sodium decreased [Unknown]
  - Blood urea increased [Unknown]
  - Blood creatinine increased [Unknown]
  - Urine abnormality [Unknown]
  - White blood cells urine positive [Unknown]
  - Protein urine present [Unknown]
  - Urine bilirubin increased [Unknown]
  - Red blood cells urine positive [Unknown]
  - Klebsiella test positive [Unknown]
  - Red blood cell sedimentation rate increased [Unknown]
  - Red cell distribution width increased [Unknown]
  - Drug ineffective [Unknown]
  - Blood glucose increased [Unknown]
  - Body temperature increased [Unknown]
  - Pyrexia [Unknown]

NARRATIVE: CASE EVENT DATE: 20230617
